FAERS Safety Report 23938072 (Version 1)
Quarter: 2024Q2

REPORT INFORMATION
  Report Type: Spontaneous
  Country: BR (occurrence: BR)
  Receive Date: 20240604
  Receipt Date: 20240604
  Transmission Date: 20240716
  Serious: Yes (Other)
  Sender: FDA-Public Use
  Company Number: BR-BAXTER-2024BAX019185

PATIENT
  Age: 36 Year
  Sex: Female
  Weight: 51.1 kg

DRUGS (4)
  1. IRON [Suspect]
     Active Substance: IRON
     Indication: Mineral supplementation
     Dosage: 200 MG DILUTED IN 250 ML OF 0.9% SALINE SOLUTION, ONCE A WEEK FOR 4 WEEKS, IN 60 MINUTES
     Route: 042
     Dates: start: 20240515
  2. IRON [Suspect]
     Active Substance: IRON
     Dosage: 200 MG DILUTED IN 250 ML OF 0.9% SALINE SOLUTION, ONCE A WEEK FOR 4 WEEKS
     Route: 042
     Dates: end: 20240522
  3. SODIUM CHLORIDE [Suspect]
     Active Substance: SODIUM CHLORIDE
     Indication: Medication dilution
     Dosage: 250 ML OF 0.9% SALINE SOLUTION USED TO DILUTE 200 MG OF SUCROFER, ONCE A WEEK FOR 4 WEEKS, IN 60 MIN
     Route: 042
     Dates: start: 20240515
  4. SODIUM CHLORIDE [Suspect]
     Active Substance: SODIUM CHLORIDE
     Dosage: 250 ML OF 0.9% SALINE SOLUTION USED TO DILUTE 200 MG OF SUCROFER, ONCE A WEEK FOR 4 WEEKS
     Route: 042
     Dates: end: 20240522

REACTIONS (4)
  - Burning sensation [Recovered/Resolved]
  - Skin plaque [Recovered/Resolved]
  - Erythema [Recovered/Resolved]
  - Pruritus [Recovered/Resolved]

NARRATIVE: CASE EVENT DATE: 20240522
